FAERS Safety Report 16187279 (Version 1)
Quarter: 2019Q2

REPORT INFORMATION
  Report Type: Spontaneous
  Country: KE (occurrence: KE)
  Receive Date: 20190412
  Receipt Date: 20190412
  Transmission Date: 20190711
  Serious: Yes (Other)
  Sender: FDA-Public Use
  Company Number: KE-SUN PHARMACEUTICAL INDUSTRIES LTD-2018R1-186858

PATIENT
  Sex: Female
  Weight: .22 kg

DRUGS (9)
  1. LAMIVUDINE. [Suspect]
     Active Substance: LAMIVUDINE
     Indication: CHRONIC HEPATITIS B
     Dosage: UNK
     Route: 064
  2. PROGUANIL [Suspect]
     Active Substance: PROGUANIL
     Indication: SPLENOMEGALY
  3. PROPRANOLOL [Suspect]
     Active Substance: PROPRANOLOL HYDROCHLORIDE
     Indication: PORTAL HYPERTENSION
     Dosage: 40 MILLIGRAM, DAILY
     Route: 064
  4. SPIRONOLACTONE. [Suspect]
     Active Substance: SPIRONOLACTONE
     Indication: PORTAL HYPERTENSION
     Dosage: 25 MILLIGRAM, DAILY
     Route: 064
  5. FUROSEMIDE. [Suspect]
     Active Substance: FUROSEMIDE
     Indication: PORTAL HYPERTENSION
     Dosage: 40 MILLIGRAM, DAILY
     Route: 064
  6. CEFUROXIME. [Suspect]
     Active Substance: CEFUROXIME
     Indication: PRODUCT USED FOR UNKNOWN INDICATION
     Dosage: 500 MILLIGRAM, BID
  7. FUROSEMIDE. [Suspect]
     Active Substance: FUROSEMIDE
     Indication: POLYURIA
  8. TENOFOVIR [Suspect]
     Active Substance: TENOFOVIR
     Indication: CHRONIC HEPATITIS B
     Dosage: UNK
     Route: 064
  9. PROGUANIL [Suspect]
     Active Substance: PROGUANIL
     Indication: MALARIA PROPHYLAXIS
     Dosage: 100 MILLIGRAM, DAILY
     Route: 064

REACTIONS (2)
  - Foetal exposure during pregnancy [Unknown]
  - Premature baby [Unknown]
